FAERS Safety Report 16968807 (Version 1)
Quarter: 2019Q4

REPORT INFORMATION
  Report Type: Spontaneous
  Country: IT (occurrence: IT)
  Receive Date: 20191029
  Receipt Date: 20191029
  Transmission Date: 20200122
  Serious: Yes (Hospitalization)
  Sender: FDA-Public Use
  Company Number: IT-ROCHE-2450694

PATIENT
  Age: 46 Year
  Sex: Male

DRUGS (2)
  1. RIVOTRIL [Suspect]
     Active Substance: CLONAZEPAM
     Indication: MENTAL DISORDER
     Dosage: 2.5 MG/ML
     Route: 048
     Dates: start: 20191013, end: 20191013
  2. TALOFEN [Suspect]
     Active Substance: PROMAZINE HYDROCHLORIDE
     Indication: MENTAL DISORDER
     Dosage: 4 G/100 ML
     Route: 048
     Dates: start: 20191013, end: 20191013

REACTIONS (3)
  - Drug abuse [Unknown]
  - Speech disorder [Recovering/Resolving]
  - Suspected suicide attempt [Recovering/Resolving]

NARRATIVE: CASE EVENT DATE: 20191013
